FAERS Safety Report 4568144-1 (Version None)
Quarter: 2005Q1

REPORT INFORMATION
  Report Type: 
  Country: None (occurrence: None)
  Receive Date: 20050128
  Receipt Date: 20050121
  Transmission Date: 20050727
  Serious: Yes (Death, Hospitalization)
  Sender: FDA-Public Use
  Company Number: 163-20785-05010403

PATIENT
  Age: 63 Year
  Sex: Female

DRUGS (9)
  1. THALOMID [Suspect]
     Indication: MULTIPLE MYELOMA
     Dosage: 200 MG, DAILY, ORAL
     Route: 048
     Dates: start: 20040914, end: 20050101
  2. SYNTHROID [Concomitant]
  3. LOPRESSOR [Concomitant]
  4. IMDUR [Concomitant]
  5. LASIX [Concomitant]
  6. DECADRON [Concomitant]
  7. ALLOPURINOL [Concomitant]
  8. OXYCONTIN [Concomitant]
  9. PERCOCET [Concomitant]

REACTIONS (3)
  - ACUTE LEUKAEMIA [None]
  - HAEMOGLOBIN DECREASED [None]
  - PLATELET COUNT DECREASED [None]
